FAERS Safety Report 19982148 (Version 2)
Quarter: 2021Q4

REPORT INFORMATION
  Report Type: Other
  Country: US (occurrence: US)
  Receive Date: 20211022
  Receipt Date: 20211125
  Transmission Date: 20220303
  Serious: No
  Sender: FDA-Public Use
  Company Number: US-NEUROCRINE BIOSCIENCES INC.-2021NBI05959

PATIENT

DRUGS (4)
  1. INGREZZA [Suspect]
     Active Substance: VALBENAZINE
     Indication: Tardive dyskinesia
     Dosage: 80 MILLIGRAM, QD
     Route: 048
     Dates: start: 20190405, end: 20211018
  2. ZYPREXA [Concomitant]
     Active Substance: OLANZAPINE
     Indication: Schizophrenia
     Dosage: 10 MILLIGRAM
     Route: 048
     Dates: start: 20211018
  3. ALPRAZOLAM [Concomitant]
     Active Substance: ALPRAZOLAM
     Indication: Anxiety
     Dosage: 1 MILLIGRAM
     Route: 048
     Dates: start: 20210405
  4. PALIPERIDONE [Concomitant]
     Active Substance: PALIPERIDONE
     Indication: Hallucination
     Dosage: 12 MILLIGRAM
     Route: 048
     Dates: start: 20200206, end: 20211018

REACTIONS (4)
  - Tardive dyskinesia [Recovered/Resolved]
  - Therapeutic product effect decreased [Unknown]
  - Intentional product use issue [Unknown]
  - Overdose [Unknown]

NARRATIVE: CASE EVENT DATE: 20211018
